FAERS Safety Report 4980154-9 (Version None)
Quarter: 2006Q2

REPORT INFORMATION
  Report Type: 
  Country: None (occurrence: None)
  Receive Date: 20060421
  Receipt Date: 20051202
  Transmission Date: 20061013
  Serious: Yes (Hospitalization, Other)
  Sender: FDA-Public Use
  Company Number: US-MERCK-0512USA00484

PATIENT
  Age: 77 Year
  Sex: Female
  Weight: 68 kg

DRUGS (6)
  1. VIOXX [Suspect]
     Indication: ARTHRITIS
     Route: 048
     Dates: start: 19990820, end: 20040101
  2. ASPIRIN [Concomitant]
     Indication: PROPHYLAXIS
     Route: 065
  3. LESCOL [Concomitant]
     Indication: BLOOD CHOLESTEROL INCREASED
     Route: 065
  4. ACIPHEX [Concomitant]
     Indication: GASTROOESOPHAGEAL REFLUX DISEASE
     Route: 065
  5. ARIMIDEX [Concomitant]
     Indication: NEOPLASM MALIGNANT
     Route: 065
  6. ACCUPRIL [Concomitant]
     Indication: HYPERTENSION
     Route: 065
     Dates: start: 20020101

REACTIONS (5)
  - CAROTID ARTERY OCCLUSION [None]
  - CAROTID ENDARTERECTOMY [None]
  - CEREBROVASCULAR ACCIDENT [None]
  - LIMB INJURY [None]
  - MYOCARDIAL INFARCTION [None]
